FAERS Safety Report 5959788-0 (Version None)
Quarter: 2008Q4

REPORT INFORMATION
  Report Type: 
  Country: None (occurrence: None)
  Receive Date: 20081120
  Receipt Date: 20081111
  Transmission Date: 20090506
  Serious: Yes (Hospitalization, Congenital Anomaly)
  Sender: FDA-Public Use
  Company Number: A0680947A

PATIENT
  Sex: Female
  Weight: 4.4 kg

DRUGS (6)
  1. PAXIL CR [Suspect]
     Indication: ANXIETY
     Route: 048
     Dates: start: 20040301
  2. PAROXETINE HCL [Suspect]
     Indication: STRESS
     Dosage: 30MG PER DAY
     Route: 048
     Dates: start: 20050401, end: 20061101
  3. TYLENOL (CAPLET) [Concomitant]
     Dates: start: 19800101
  4. IBUPROFEN TABLETS [Concomitant]
  5. ZOFRAN [Concomitant]
     Dates: start: 20041201, end: 20050101
  6. RHOGAM [Concomitant]
     Dates: start: 20041203

REACTIONS (15)
  - ATRIAL SEPTAL DEFECT [None]
  - CARDIAC MURMUR [None]
  - CYANOSIS [None]
  - DRUG EXPOSURE DURING PREGNANCY [None]
  - ECCHYMOSIS [None]
  - HEART SOUNDS ABNORMAL [None]
  - HYPERBILIRUBINAEMIA [None]
  - JAUNDICE NEONATAL [None]
  - MECONIUM STAIN [None]
  - OEDEMA PERIPHERAL [None]
  - PATENT DUCTUS ARTERIOSUS [None]
  - PULMONARY VALVE STENOSIS CONGENITAL [None]
  - RESPIRATORY FAILURE [None]
  - TRICUSPID VALVE INCOMPETENCE [None]
  - VENTRICULAR HYPERTROPHY [None]
